FAERS Safety Report 5777846-0 (Version None)
Quarter: 2008Q2

REPORT INFORMATION
  Report Type: 
  Country: None (occurrence: None)
  Receive Date: 20080601
  Receipt Date: 20080103
  Transmission Date: 20081010
  Serious: No
  Sender: FDA-Public Use
  Company Number: US200801000728

PATIENT
  Age: 51 Year
  Sex: 0
  Weight: 93 kg

DRUGS (12)
  1. BYETTA [Suspect]
     Indication: TYPE 2 DIABETES MELLITUS
     Dosage: 5 UG, 2/D, SUBCUTANEOUS
     Route: 058
     Dates: start: 20071201
  2. EXENATIDE 5MCG PEN, DISPOSABLE DEVICE (EXENATIDE PEN (5MCG)) PEN,DISPO [Concomitant]
  3. TIMOPTIC-XE (TIMOLOL MALEATE) DROP [Concomitant]
  4. XALATAN [Concomitant]
  5. GLUCOVANCE [Concomitant]
  6. DRUG USED IN DIABETES TABLET [Concomitant]
  7. TEGRETOL [Concomitant]
  8. ATENOLOL [Concomitant]
  9. LASIX /USA/ (FUROSEMIDE) [Concomitant]
  10. POTASSIUM CHLORIDE [Concomitant]
  11. NEXIUM [Concomitant]
  12. LIPITOR [Concomitant]

REACTIONS (3)
  - GASTROOESOPHAGEAL REFLUX DISEASE [None]
  - INTRAOCULAR PRESSURE INCREASED [None]
  - WEIGHT DECREASED [None]
